FAERS Safety Report 7812951-6 (Version None)
Quarter: 2011Q4

REPORT INFORMATION
  Report Type: 
  Country: None (occurrence: None)
  Receive Date: 20111013
  Receipt Date: 20111004
  Transmission Date: 20120403
  Serious: Yes (Hospitalization)
  Sender: FDA-Public Use
  Company Number: BR-ASTRAZENECA-2011SE59796

PATIENT
  Age: 36 Year
  Sex: Male
  Weight: 78 kg

DRUGS (6)
  1. ATENOLOL [Suspect]
     Route: 048
     Dates: start: 20110401
  2. PANTOPRAZOLE [Concomitant]
     Route: 048
     Dates: start: 20110901
  3. ASPIRIN PREVENT [Concomitant]
     Route: 048
     Dates: start: 20110401
  4. PANTOPRAZOLE [Concomitant]
     Route: 048
     Dates: end: 20110901
  5. SIMVASTATIN [Concomitant]
     Route: 048
  6. CLOPIDOGREL [Suspect]
     Route: 065
     Dates: end: 20110901

REACTIONS (7)
  - VASCULAR STENOSIS [None]
  - FLATULENCE [None]
  - HELMINTHIC INFECTION [None]
  - ABDOMINAL PAIN UPPER [None]
  - VERTIGO [None]
  - MALAISE [None]
  - DYSPEPSIA [None]
